FAERS Safety Report 12225294 (Version 2)
Quarter: 2016Q2

REPORT INFORMATION
  Report Type: Spontaneous
  Country: JP (occurrence: JP)
  Receive Date: 20160331
  Receipt Date: 20160427
  Transmission Date: 20160815
  Serious: Yes (Other)
  Sender: FDA-Public Use
  Company Number: JP-GLAXOSMITHKLINE-JP2016JPN028710

PATIENT
  Age: 55 Year
  Sex: Male
  Weight: 72 kg

DRUGS (16)
  1. LAMICTAL [Suspect]
     Active Substance: LAMOTRIGINE
     Dosage: 100 MG, QD
     Route: 048
     Dates: start: 20150318, end: 20150331
  2. LAMICTAL [Suspect]
     Active Substance: LAMOTRIGINE
     Dosage: 300 MG, QD
     Route: 048
     Dates: start: 20150424, end: 20150804
  3. MYSLEE [Concomitant]
     Active Substance: ZOLPIDEM TARTRATE
  4. LAMICTAL [Suspect]
     Active Substance: LAMOTRIGINE
     Dosage: 25 MG, QD
     Route: 048
     Dates: start: 20150217, end: 20150303
  5. LAMICTAL [Suspect]
     Active Substance: LAMOTRIGINE
     Dosage: 100 MG, BID
     Route: 048
     Dates: start: 20160203, end: 20160215
  6. LAMICTAL [Suspect]
     Active Substance: LAMOTRIGINE
     Dosage: 125 MG, BID
     Route: 048
     Dates: start: 20160316, end: 20160324
  7. LAXOBERON [Concomitant]
     Active Substance: SODIUM PICOSULFATE
  8. BROTIZOLAM [Concomitant]
     Active Substance: BROTIZOLAM
  9. LAMICTAL [Suspect]
     Active Substance: LAMOTRIGINE
     Indication: BIPOLAR DISORDER
     Dosage: 25 MG, QOD
     Route: 048
     Dates: start: 20150207, end: 20150216
  10. LAMICTAL [Suspect]
     Active Substance: LAMOTRIGINE
     Dosage: 200 MG, BID
     Route: 048
     Dates: start: 20150805, end: 20160202
  11. LAMICTAL [Suspect]
     Active Substance: LAMOTRIGINE
     Dosage: 150 MG, BID
     Route: 048
     Dates: start: 20160216, end: 20160301
  12. SERTRALINE HYDROCHLORIDE. [Concomitant]
     Active Substance: SERTRALINE HYDROCHLORIDE
  13. LAMICTAL [Suspect]
     Active Substance: LAMOTRIGINE
     Dosage: 137.5 MG, BID
     Route: 048
     Dates: start: 20160302, end: 20160315
  14. LAMICTAL [Suspect]
     Active Substance: LAMOTRIGINE
     Dosage: 50 MG, QD
     Route: 048
     Dates: start: 20150303, end: 20150317
  15. LAMICTAL [Suspect]
     Active Substance: LAMOTRIGINE
     Dosage: 200 MG, QD
     Route: 048
     Dates: start: 20150401, end: 20150423
  16. LAMICTAL [Suspect]
     Active Substance: LAMOTRIGINE
     Dosage: 187.5 MG, BID
     Route: 048
     Dates: start: 20160215, end: 20160215

REACTIONS (6)
  - Discomfort [Recovered/Resolved]
  - Asthenia [Recovered/Resolved]
  - Drug withdrawal syndrome [Recovering/Resolving]
  - Feeling cold [Recovering/Resolving]
  - Hypoaesthesia [Recovered/Resolved]
  - Feeling hot [Recovered/Resolved]

NARRATIVE: CASE EVENT DATE: 20160205
